FAERS Safety Report 8900225 (Version 1)
Quarter: 2012Q4

REPORT INFORMATION
  Report Type: 
  Country: US (occurrence: US)
  Receive Date: 20121109
  Receipt Date: 20121109
  Transmission Date: 20130627
  Serious: Yes (Hospitalization, Other)
  Sender: FDA-Public Use
  Company Number: US-BAYER-2012-114940

PATIENT
  Age: 50 Year
  Sex: Female

DRUGS (1)
  1. MIRENA [Suspect]
     Indication: CONTRACEPTION
     Dosage: 20 mcg/24hr, CONT
     Route: 015
     Dates: start: 2008

REACTIONS (6)
  - Thyroid cancer [None]
  - Vaginal haemorrhage [None]
  - Allergy to metals [None]
  - Amenorrhoea [None]
  - Abdominal pain lower [Not Recovered/Not Resolved]
  - Pruritus [Not Recovered/Not Resolved]
